FAERS Safety Report 11120055 (Version 1)
Quarter: 2015Q2

REPORT INFORMATION
  Report Type: Spontaneous
  Country: US (occurrence: US)
  Receive Date: 20150518
  Receipt Date: 20150518
  Transmission Date: 20150821
  Serious: Yes (Other)
  Sender: FDA-Public Use
  Company Number: US-JNJFOC-20150510702

PATIENT
  Age: 54 Year
  Sex: Female

DRUGS (6)
  1. AZILECT [Concomitant]
     Active Substance: RASAGILINE MESYLATE
  2. ENTACAPONE. [Concomitant]
     Active Substance: ENTACAPONE
  3. NEUPRO [Concomitant]
     Active Substance: ROTIGOTINE
  4. IMBRUVICA [Suspect]
     Active Substance: IBRUTINIB
     Indication: CHRONIC LYMPHOCYTIC LEUKAEMIA
     Route: 048
     Dates: start: 20140710
  5. EXFORGE HCT [Concomitant]
     Active Substance: AMLODIPINE BESYLATE\HYDROCHLOROTHIAZIDE\VALSARTAN
  6. CARBIDOPA/ LEVODOPA [Concomitant]

REACTIONS (8)
  - Incorrect dose administered [Recovered/Resolved]
  - Cerebrovascular accident [Unknown]
  - Joint swelling [Unknown]
  - Balance disorder [Unknown]
  - Arthralgia [Unknown]
  - Cystitis [Unknown]
  - Hypoaesthesia [Unknown]
  - Peripheral swelling [Unknown]

NARRATIVE: CASE EVENT DATE: 20140710
